FAERS Safety Report 21252867 (Version 2)
Quarter: 2022Q3

REPORT INFORMATION
  Report Type: Spontaneous
  Country: JP (occurrence: JP)
  Receive Date: 20220825
  Receipt Date: 20220902
  Transmission Date: 20221027
  Serious: Yes (Hospitalization, Other)
  Sender: FDA-Public Use
  Company Number: JP-ONO-2022JP021525

PATIENT
  Age: 73 Year
  Sex: Male

DRUGS (10)
  1. EMEND [Suspect]
     Active Substance: APREPITANT
     Indication: Prophylaxis of nausea and vomiting
     Dosage: UNK
     Route: 048
     Dates: start: 20220621, end: 20220623
  2. ANAMORELIN HYDROCHLORIDE [Suspect]
     Active Substance: ANAMORELIN HYDROCHLORIDE
     Indication: Cachexia
     Dosage: 100 MILLIGRAM (MG), EVERYDAY
     Route: 048
     Dates: start: 20220620, end: 20220626
  3. ANAMORELIN HYDROCHLORIDE [Suspect]
     Active Substance: ANAMORELIN HYDROCHLORIDE
     Dosage: 100 MILLIGRAM (MG), EVERYDAY
     Route: 048
     Dates: start: 20220711
  4. TS-1 [Concomitant]
     Active Substance: GIMERACIL\OTERACIL\TEGAFUR
     Dosage: 4 DOSAGE FORM (DF)
     Route: 048
     Dates: start: 20220121
  5. ZINC [Concomitant]
     Active Substance: ZINC
     Dosage: UNK
     Route: 065
  6. DECADRON [Concomitant]
     Active Substance: DEXAMETHASONE
     Dosage: UNK; FORMULATION: ORAL DRUG UNSPECIFIED FORM
     Route: 048
     Dates: start: 20220620, end: 20220622
  7. TRASTUZUMAB [Concomitant]
     Active Substance: TRASTUZUMAB
     Dosage: UNK
     Route: 065
     Dates: start: 20220121
  8. PALONOSETRON [Concomitant]
     Active Substance: PALONOSETRON
     Dosage: UNK
     Route: 065
     Dates: start: 20220121
  9. DEXAMETHASONE SODIUM PHOSPHATE [Concomitant]
     Active Substance: DEXAMETHASONE SODIUM PHOSPHATE
     Dosage: UNK
     Route: 065
     Dates: start: 20220121
  10. OXALIPLATIN [Concomitant]
     Active Substance: OXALIPLATIN
     Dosage: UNK
     Route: 065
     Dates: start: 20220121

REACTIONS (1)
  - Diabetic ketoacidosis [Recovered/Resolved]

NARRATIVE: CASE EVENT DATE: 20220625
